FAERS Safety Report 6838269-6 (Version None)
Quarter: 2010Q3

REPORT INFORMATION
  Report Type: 
  Country: None (occurrence: None)
  Receive Date: 20100713
  Receipt Date: 20070607
  Transmission Date: 20110219
  Serious: No
  Sender: FDA-Public Use
  Company Number: US-PFIZER INC-2007047621

PATIENT
  Sex: Female
  Weight: 77 kg

DRUGS (9)
  1. CHANTIX [Suspect]
     Indication: SMOKING CESSATION THERAPY
     Dates: start: 20070401
  2. LISINOPRIL [Concomitant]
  3. ZOCOR [Concomitant]
  4. PREMPRO [Concomitant]
  5. SYNTHROID [Concomitant]
  6. CALCIUM [Concomitant]
  7. MOBIC [Concomitant]
  8. PARAFON [Concomitant]
  9. DYAZIDE [Concomitant]

REACTIONS (1)
  - WEIGHT LOSS POOR [None]
